FAERS Safety Report 21416925 (Version 2)
Quarter: 2022Q4

REPORT INFORMATION
  Report Type: Spontaneous
  Country: FR (occurrence: FR)
  Receive Date: 20221006
  Receipt Date: 20221019
  Transmission Date: 20230113
  Serious: Yes (Other)
  Sender: FDA-Public Use
  Company Number: FR-TEVA-2022-FR-2079774

PATIENT
  Sex: Male

DRUGS (5)
  1. GEMCITABINE [Suspect]
     Active Substance: GEMCITABINE
     Indication: Cholangiocarcinoma
     Dosage: HE RECEIVED GEMCITABINE AND CAPECITABINE FOR 6 MONTHS THEN, GEMCITABINE AND CISPLATIN FOR 2 MONTHS
     Route: 065
     Dates: start: 201803
  2. GEMCITABINE [Suspect]
     Active Substance: GEMCITABINE
     Route: 050
     Dates: start: 202203
  3. CAPECITABINE [Suspect]
     Active Substance: CAPECITABINE
     Indication: Cholangiocarcinoma
     Route: 065
     Dates: start: 201803
  4. CISPLATIN [Suspect]
     Active Substance: CISPLATIN
     Indication: Cholangiocarcinoma
     Route: 065
  5. OXALIPLATIN [Suspect]
     Active Substance: OXALIPLATIN
     Indication: Cholangiocarcinoma
     Route: 065
     Dates: start: 202203

REACTIONS (5)
  - Neuropathy peripheral [Unknown]
  - Liver function test abnormal [Unknown]
  - Fatigue [Unknown]
  - Drug ineffective [Unknown]
  - Diarrhoea [Unknown]
